FAERS Safety Report 19944855 (Version 1)
Quarter: 2021Q4

REPORT INFORMATION
  Report Type: Spontaneous
  Country: SE (occurrence: SE)
  Receive Date: 20211012
  Receipt Date: 20211012
  Transmission Date: 20220303
  Serious: Yes (Disabling)
  Sender: FDA-Public Use
  Company Number: None

PATIENT
  Age: 18 Year
  Sex: Female
  Weight: 60 kg

DRUGS (5)
  1. OLANZAPINE [Suspect]
     Active Substance: OLANZAPINE
     Indication: Mood swings
     Dosage: 5 MILLIGRAM, QD ( 1 TABLETT 1 G?NGER/ DAG)
     Route: 048
     Dates: start: 20181115, end: 20200510
  2. LAMOTRIGINE [Concomitant]
     Active Substance: LAMOTRIGINE
     Dosage: 100MG 1 TABLETT 1 G?NG DAGLIGEN
     Route: 048
     Dates: start: 20181115
  3. ATARAX [Concomitant]
     Active Substance: HYDROXYZINE HYDROCHLORIDE
     Dosage: 1 DOSAGE FORM, PRN (25 MG 1 TABLETT VID BEHOV, MAX 4 ST/DAG)
     Route: 048
     Dates: start: 20170816
  4. SERTRALINE [Concomitant]
     Active Substance: SERTRALINE HYDROCHLORIDE
     Dosage: 100MG 1 TABLETT
     Route: 048
     Dates: start: 20170816
  5. SERTRALINE [Concomitant]
     Active Substance: SERTRALINE HYDROCHLORIDE
     Dosage: 25 MILLIGRAM, QD (5MG 1 TABLET 1 TIME / DAY, TABLETS)
     Route: 048
     Dates: start: 20180315

REACTIONS (5)
  - Weight increased [Recovering/Resolving]
  - Breast enlargement [Not Recovered/Not Resolved]
  - Flat affect [Unknown]
  - Increased appetite [Recovered/Resolved]
  - Metabolic disorder [Unknown]

NARRATIVE: CASE EVENT DATE: 20181115
